FAERS Safety Report 18959731 (Version 1)
Quarter: 2021Q1

REPORT INFORMATION
  Report Type: Report from Study
  Country: MX (occurrence: MX)
  Receive Date: 20210302
  Receipt Date: 20210302
  Transmission Date: 20210420
  Serious: Yes (Death, Other)
  Sender: FDA-Public Use
  Company Number: MX-BRISTOL-MYERS SQUIBB COMPANY-BMS-2021-019874

PATIENT
  Age: 57 Year
  Sex: Female

DRUGS (1)
  1. DASATINIB. [Suspect]
     Active Substance: DASATINIB
     Indication: CHRONIC MYELOID LEUKAEMIA
     Dosage: 50 MILLIGRAM, DAILY
     Route: 048
     Dates: start: 20200501, end: 20210201

REACTIONS (1)
  - Death [Fatal]

NARRATIVE: CASE EVENT DATE: 20210201
